FAERS Safety Report 7610234-0 (Version None)
Quarter: 2011Q3

REPORT INFORMATION
  Report Type: 
  Country: None (occurrence: None)
  Receive Date: 20110713
  Receipt Date: 20110713
  Transmission Date: 20111222
  Serious: Yes (Life-Threatening, Hospitalization)
  Sender: FDA-Public Use
  Company Number: None

PATIENT
  Sex: Male
  Weight: 77.5651 kg

DRUGS (2)
  1. MORPHINE [Concomitant]
  2. AVELOX [Suspect]
     Indication: PNEUMONIA
     Dosage: DON'T RECALL THREW IT OUT 4-8-2011 1 DAILY TABLET ORALLY
     Route: 048
     Dates: start: 20110404, end: 20110407

REACTIONS (7)
  - RASH FOLLICULAR [None]
  - DYSPHAGIA [None]
  - CHOKING SENSATION [None]
  - RASH [None]
  - RESPIRATORY ARREST [None]
  - ASTHENIA [None]
  - MUSCULAR WEAKNESS [None]
